FAERS Safety Report 18236341 (Version 2)
Quarter: 2022Q4

REPORT INFORMATION
  Report Type: Spontaneous
  Country: IN (occurrence: IN)
  Receive Date: 20200907
  Receipt Date: 20221207
  Transmission Date: 20230112
  Serious: Yes (Other)
  Sender: FDA-Public Use
  Company Number: IN-SUN PHARMACEUTICAL INDUSTRIES LTD-2020R1-259467

PATIENT
  Age: 46 Year
  Sex: Female

DRUGS (2)
  1. OCTREOTIDE [Suspect]
     Active Substance: OCTREOTIDE
     Indication: Thyroid stimulating hormone-producing pituitary tumour
     Dosage: 50 MICROGRAM PER 100 GRAM, TID
     Route: 042
  2. OCTREOTIDE [Suspect]
     Active Substance: OCTREOTIDE
     Dosage: 20 MILLIGRAM
     Route: 042

REACTIONS (1)
  - Thyroiditis [Unknown]
